FAERS Safety Report 11004865 (Version 1)
Quarter: 2015Q2

REPORT INFORMATION
  Report Type: Spontaneous
  Country: FR (occurrence: FR)
  Receive Date: 20150409
  Receipt Date: 20150409
  Transmission Date: 20150821
  Serious: Yes (Hospitalization)
  Sender: FDA-Public Use
  Company Number: FR-SA-2015SA042515

PATIENT
  Age: 85 Year
  Sex: Male

DRUGS (12)
  1. CRESTOR [Concomitant]
     Active Substance: ROSUVASTATIN CALCIUM
  2. LANSOPRAZOLE. [Concomitant]
     Active Substance: LANSOPRAZOLE
  3. NEURONTIN [Concomitant]
     Active Substance: GABAPENTIN
  4. ALLOPURINOL. [Concomitant]
     Active Substance: ALLOPURINOL
  5. METFORMIN [Concomitant]
     Active Substance: METFORMIN HYDROCHLORIDE
  6. PREVISCAN [Suspect]
     Active Substance: FLUINDIONE
     Indication: ATRIAL FIBRILLATION
     Dosage: FORM COMPRIME SECABLE: DIVISIBLE TABLET
     Route: 065
     Dates: start: 201407
  7. PREVISCAN [Suspect]
     Active Substance: FLUINDIONE
     Indication: ATRIAL FIBRILLATION
     Route: 065
  8. ENALAPRIL [Concomitant]
     Active Substance: ENALAPRIL
  9. LASILIX FAIBLE [Concomitant]
     Active Substance: FUROSEMIDE
  10. PLAVIX [Suspect]
     Active Substance: CLOPIDOGREL BISULFATE
     Indication: ATRIAL FIBRILLATION
     Route: 065
     Dates: end: 201408
  11. TARDYFERON [Concomitant]
     Active Substance: FERROUS SULFATE\FOLIC ACID
  12. ATENOLOL. [Concomitant]
     Active Substance: ATENOLOL

REACTIONS (2)
  - International normalised ratio increased [Recovered/Resolved]
  - Rectal haemorrhage [Recovered/Resolved]

NARRATIVE: CASE EVENT DATE: 20140803
